FAERS Safety Report 9691364 (Version 12)
Quarter: 2016Q3

REPORT INFORMATION
  Report Type: Report from Study
  Country: CO (occurrence: CO)
  Receive Date: 20131115
  Receipt Date: 20160920
  Transmission Date: 20161109
  Serious: Yes (Death, Hospitalization)
  Sender: FDA-Public Use
  Company Number: CO-ROCHE-1256034

PATIENT
  Age: 73 Year
  Sex: Male
  Weight: 67.5 kg

DRUGS (30)
  1. TRAZODONE [Concomitant]
     Active Substance: TRAZODONE HYDROCHLORIDE
     Route: 048
     Dates: start: 20130721, end: 20130730
  2. QUETIAPINE. [Concomitant]
     Active Substance: QUETIAPINE
     Route: 065
     Dates: start: 20130930, end: 20131027
  3. RANITIDINE. [Concomitant]
     Active Substance: RANITIDINE
     Route: 065
     Dates: start: 20131003
  4. IRON SUCROSE [Concomitant]
     Active Substance: IRON SUCROSE
     Route: 042
     Dates: start: 20130717, end: 20130726
  5. DOXORUBICIN [Suspect]
     Active Substance: DOXORUBICIN
     Indication: DIFFUSE LARGE B-CELL LYMPHOMA
     Dosage: DATE OF LAST DOSE:25/OCT/2013
     Route: 065
     Dates: start: 20130725
  6. INSULIN GLARGINE [Concomitant]
     Active Substance: INSULIN GLARGINE
     Dosage: 15 UN
     Route: 058
     Dates: start: 20131023, end: 20131030
  7. QUETIAPINE. [Concomitant]
     Active Substance: QUETIAPINE
     Route: 065
     Dates: start: 20130808
  8. QUETIAPINE. [Concomitant]
     Active Substance: QUETIAPINE
     Route: 048
     Dates: start: 20130918, end: 20130925
  9. NPH INSULIN [Concomitant]
     Active Substance: INSULIN BEEF
     Dosage: 14 UNITS AT NGHT
     Route: 058
     Dates: start: 20130810, end: 20130816
  10. VINCRISTINE [Suspect]
     Active Substance: VINCRISTINE
     Indication: DIFFUSE LARGE B-CELL LYMPHOMA
     Dosage: DATE OF LAST DOSE:25/OCT/2013
     Route: 065
     Dates: start: 20130725
  11. VERAPAMIL [Concomitant]
     Active Substance: VERAPAMIL HYDROCHLORIDE
     Route: 065
     Dates: start: 20120101
  12. ALLOPURINOL. [Concomitant]
     Active Substance: ALLOPURINOL
     Indication: PROPHYLAXIS
     Route: 048
     Dates: start: 20130721, end: 20130725
  13. RITUXIMAB [Suspect]
     Active Substance: RITUXIMAB
     Indication: DIFFUSE LARGE B-CELL LYMPHOMA
     Dosage: DAY 1, INTRAVENOUS RITUXIMAB ADMINISTERED ONLY ONCE.
     Route: 042
     Dates: start: 20130725
  14. PREDNISOLONE. [Suspect]
     Active Substance: PREDNISOLONE
     Indication: DIFFUSE LARGE B-CELL LYMPHOMA
     Dosage: DATE OF LAST DOSE:25/OCT/2013
     Route: 065
     Dates: start: 20130725
  15. NADROPARINE [Concomitant]
     Active Substance: NADROPARIN
     Route: 058
     Dates: start: 20130714, end: 20130727
  16. QUETIAPINE. [Concomitant]
     Active Substance: QUETIAPINE
     Route: 048
     Dates: start: 20130913, end: 20130917
  17. INSULIN GLARGINE [Concomitant]
     Active Substance: INSULIN GLARGINE
     Dosage: 10 UN
     Route: 058
     Dates: start: 20131004, end: 20131022
  18. LINEZOLID. [Concomitant]
     Active Substance: LINEZOLID
     Route: 048
     Dates: start: 20131006, end: 20131008
  19. NADROPARINE [Concomitant]
     Active Substance: NADROPARIN
     Route: 065
     Dates: start: 20130814
  20. HYDROMORPHONE [Concomitant]
     Active Substance: HYDROMORPHONE
     Dosage: 0.3 MG/C
     Route: 042
     Dates: start: 20130726, end: 20130731
  21. TRAZODONE [Concomitant]
     Active Substance: TRAZODONE HYDROCHLORIDE
     Indication: PROPHYLAXIS
     Route: 065
     Dates: start: 20130727
  22. OMEPRAZOLE. [Concomitant]
     Active Substance: OMEPRAZOLE
     Route: 065
     Dates: start: 20131018, end: 20131106
  23. CYCLOPHOSPHAMIDE. [Suspect]
     Active Substance: CYCLOPHOSPHAMIDE
     Indication: DIFFUSE LARGE B-CELL LYMPHOMA
     Dosage: DATE OF LAST DOSE:25/OCT/2013
     Route: 065
     Dates: start: 20130725
  24. NADROPARINE [Concomitant]
     Active Substance: NADROPARIN
     Indication: THROMBOSIS PROPHYLAXIS
     Route: 058
     Dates: start: 20130813, end: 20130822
  25. VERAPAMIL [Concomitant]
     Active Substance: VERAPAMIL HYDROCHLORIDE
     Route: 065
     Dates: start: 20130721, end: 20130805
  26. QUETIAPINE. [Concomitant]
     Active Substance: QUETIAPINE
     Route: 048
     Dates: start: 20130812, end: 20130817
  27. OMEPRAZOLE. [Concomitant]
     Active Substance: OMEPRAZOLE
     Route: 065
     Dates: start: 20130714, end: 20130723
  28. RITUXIMAB [Suspect]
     Active Substance: RITUXIMAB
     Indication: DIFFUSE LARGE B-CELL LYMPHOMA
     Dosage: DATE OF LAST DOSE PRIOR TO EVENT WAS 24/SEP/2013 AND 25/OCT/2013
     Route: 058
     Dates: start: 20130903
  29. FLUCONAZOLE. [Concomitant]
     Active Substance: FLUCONAZOLE
     Indication: PROPHYLAXIS
     Route: 048
     Dates: start: 20130718, end: 20130727
  30. DIPIRONE [Concomitant]
     Active Substance: METAMIZOLE SODIUM
     Indication: PAIN PROPHYLAXIS
     Route: 042
     Dates: start: 20130814, end: 20130817

REACTIONS (4)
  - Pneumonia [Recovered/Resolved]
  - Septic shock [Recovered/Resolved]
  - Septic shock [Fatal]
  - Septic shock [Recovered/Resolved]

NARRATIVE: CASE EVENT DATE: 20130726
